FAERS Safety Report 18123822 (Version 1)
Quarter: 2020Q3

REPORT INFORMATION
  Report Type: Spontaneous
  Country: US (occurrence: US)
  Receive Date: 20200806
  Receipt Date: 20200806
  Transmission Date: 20201103
  Serious: No
  Sender: FDA-Public Use
  Company Number: None

PATIENT
  Age: 57 Year
  Sex: Female
  Weight: 79.38 kg

DRUGS (1)
  1. TREMFYA [Suspect]
     Active Substance: GUSELKUMAB
     Indication: PSORIASIS
     Dosage: ?          OTHER FREQUENCY: ON WEEK 0 AND WEEK 4 AS DIRECTED?
     Route: 058
     Dates: start: 202006

REACTIONS (4)
  - Illness [None]
  - Fatigue [None]
  - Multiple allergies [None]
  - Asthenia [None]
